FAERS Safety Report 14920974 (Version 2)
Quarter: 2018Q2

REPORT INFORMATION
  Report Type: Spontaneous
  Country: PT (occurrence: PT)
  Receive Date: 20180521
  Receipt Date: 20180523
  Transmission Date: 20180711
  Serious: Yes (Death, Other)
  Sender: FDA-Public Use
  Company Number: PT-B.I. PHARMACEUTICALS,INC./RIDGEFIELD-2018-BI-026946

PATIENT
  Age: 74 Year
  Sex: Male

DRUGS (6)
  1. SPIOLTO RESPIMAT [Concomitant]
     Active Substance: OLODATEROL HYDROCHLORIDE\TIOTROPIUM BROMIDE MONOHYDRATE
     Indication: DRUG THERAPY
     Route: 065
  2. OFEV [Suspect]
     Active Substance: NINTEDANIB
     Route: 065
  3. OFEV [Suspect]
     Active Substance: NINTEDANIB
     Indication: IDIOPATHIC PULMONARY FIBROSIS
     Route: 065
     Dates: start: 201706
  4. ESOMEPRAZOLE [Concomitant]
     Active Substance: ESOMEPRAZOLE
     Indication: PROPHYLAXIS
     Route: 065
  5. CONCOR [Concomitant]
     Active Substance: BISOPROLOL FUMARATE
     Indication: HYPERTENSION
     Route: 065
  6. KAINEVER [Concomitant]
     Active Substance: ESTAZOLAM
     Indication: SLEEP DISORDER
     Route: 065

REACTIONS (7)
  - Cardio-respiratory arrest [Fatal]
  - Fall [Unknown]
  - Diarrhoea [Not Recovered/Not Resolved]
  - Nausea [Recovered/Resolved]
  - Weight decreased [Not Recovered/Not Resolved]
  - Dyspepsia [Recovered/Resolved]
  - Decreased appetite [Not Recovered/Not Resolved]

NARRATIVE: CASE EVENT DATE: 2017
